FAERS Safety Report 25391502 (Version 2)
Quarter: 2025Q2

REPORT INFORMATION
  Report Type: Spontaneous
  Country: JP (occurrence: None)
  Receive Date: 20250603
  Receipt Date: 20250617
  Transmission Date: 20250717
  Serious: Yes (Other)
  Sender: INCYTE
  Company Number: JP-002147023-NVSJ2025JP005762

PATIENT
  Age: 61 Year

DRUGS (6)
  1. RUXOLITINIB [Suspect]
     Active Substance: RUXOLITINIB
     Indication: Chronic graft versus host disease
     Dosage: 10 MG, BID
  2. RUXOLITINIB [Suspect]
     Active Substance: RUXOLITINIB
  3. RUXOLITINIB [Suspect]
     Active Substance: RUXOLITINIB
  4. PREDNISOLONE [Concomitant]
     Active Substance: PREDNISOLONE
     Indication: Graft versus host disease in lung
     Route: 065
  5. PREDNISOLONE [Concomitant]
     Active Substance: PREDNISOLONE
     Indication: Chronic graft versus host disease
     Route: 065
  6. PREDNISOLONE [Concomitant]
     Active Substance: PREDNISOLONE
     Indication: Arthritis

REACTIONS (2)
  - Chronic graft versus host disease [Recovered/Resolved]
  - Therapeutic response delayed [Not Recovered/Not Resolved]
